FAERS Safety Report 6214991-X (Version None)
Quarter: 2009Q2

REPORT INFORMATION
  Report Type: 
  Country: None (occurrence: None)
  Receive Date: 20090604
  Receipt Date: 20080515
  Transmission Date: 20091009
  Serious: No
  Sender: FDA-Public Use
  Company Number: US-ASTRAZENECA-2008UW10093

PATIENT
  Age: 73 Year
  Sex: Female
  Weight: 78.5 kg

DRUGS (3)
  1. PRILOSEC [Suspect]
     Indication: GASTROOESOPHAGEAL REFLUX DISEASE
     Route: 048
  2. PRILOSEC [Suspect]
     Indication: HIATUS HERNIA
     Route: 048
  3. PRILOSEC [Suspect]
     Indication: SCAR
     Route: 048

REACTIONS (3)
  - ABDOMINAL PAIN [None]
  - MALAISE [None]
  - VOMITING [None]
